FAERS Safety Report 7234087 (Version 7)
Quarter: 2012Q4

REPORT INFORMATION
  Report Type: Report from Study
  Country: BE (occurrence: BE)
  Receive Date: 20091230
  Receipt Date: 20121218
  Transmission Date: 20130627
  Serious: Yes (Life-Threatening, Hospitalization, Disabling, Other)
  Sender: FDA-Public Use
  Company Number: PHHO2009BE14628

PATIENT
  Age: 66 Year
  Sex: Male
  Weight: 92 kg

DRUGS (7)
  1. EVEROLIMUS [Suspect]
     Indication: LIVER TRANSPLANT
     Dosage: 4.5 mg, BID
     Route: 048
     Dates: start: 20090814, end: 20091221
  2. TACROLIMUS [Suspect]
     Indication: LIVER TRANSPLANT
     Dosage: 1 mg, UNK
     Route: 048
     Dates: start: 20090722
  3. FLUCONAZOLE [Suspect]
  4. EBASTINE [Suspect]
  5. MEDROL [Concomitant]
     Dosage: UNK
     Dates: end: 20091211
  6. EMCONCOR [Concomitant]
  7. BACTRIM [Concomitant]

REACTIONS (9)
  - Liver transplant rejection [Not Recovered/Not Resolved]
  - Rhabdomyolysis [Unknown]
  - Blood creatine phosphokinase increased [Not Recovered/Not Resolved]
  - Cholangitis [Not Recovered/Not Resolved]
  - Pyrexia [Not Recovered/Not Resolved]
  - Liver function test abnormal [Not Recovered/Not Resolved]
  - Bile duct stenosis [Not Recovered/Not Resolved]
  - Lung infiltration [Not Recovered/Not Resolved]
  - Dyspnoea [Not Recovered/Not Resolved]
